FAERS Safety Report 6759977-1 (Version None)
Quarter: 2010Q2

REPORT INFORMATION
  Report Type: 
  Country: None (occurrence: None)
  Receive Date: 20100608
  Receipt Date: 20100525
  Transmission Date: 20101027
  Serious: Yes (Hospitalization, Other)
  Sender: FDA-Public Use
  Company Number: PHEH2005US06169

PATIENT
  Sex: Female
  Weight: 71.201 kg

DRUGS (51)
  1. AREDIA [Suspect]
     Indication: BREAST CANCER METASTATIC
     Dosage: 90 MG, QMO
     Route: 042
     Dates: start: 19960603, end: 20020101
  2. ZOMETA [Suspect]
     Indication: BREAST CANCER METASTATIC
     Dosage: 4 MG  Q3-4 WKS
     Route: 042
     Dates: start: 20020604, end: 20040915
  3. IMITREX [Concomitant]
     Indication: MIGRAINE
     Dosage: 50-100 MG, UNK
  4. ADRIAMYCIN PFS [Concomitant]
     Indication: BREAST CANCER METASTATIC
     Dates: start: 19970501
  5. TAXOL [Concomitant]
     Indication: BREAST CANCER METASTATIC
     Dates: start: 19970501
  6. NEUPOGEN [Concomitant]
     Indication: GRANULOCYTE COUNT DECREASED
     Dates: start: 19970801
  7. MEGACE [Concomitant]
     Indication: HOT FLUSH
  8. TAMOXIFEN CITRATE [Concomitant]
     Indication: BREAST CANCER
     Route: 048
     Dates: start: 19960501
  9. ULTRAM [Concomitant]
     Indication: DISCOMFORT
  10. TAXOTERE [Concomitant]
     Indication: OVARIAN CANCER
     Dates: start: 20030101, end: 20030101
  11. CARBOPLATIN [Concomitant]
     Indication: OVARIAN CANCER
     Dosage: 200 MG EVERY WEEK FOR 3 WEEKS
     Dates: start: 20030501, end: 20030724
  12. CARBOPLATIN [Concomitant]
     Dosage: 100 MG, ONCE/SINGLE
     Dates: start: 20030724, end: 20030724
  13. CARBOPLATIN [Concomitant]
     Dosage: 500 MG, ONCE/SINGLE
     Dates: start: 20030731, end: 20030731
  14. ARIMIDEX [Concomitant]
     Indication: BREAST CANCER
     Dosage: 1 MG, QD
  15. EPOGEN [Concomitant]
  16. AMISFOSTINE [Concomitant]
     Indication: BREAST CANCER
  17. CHEMOTHERAPEUTICS,OTHER [Concomitant]
  18. FLUOROURACIL [Concomitant]
     Indication: NEOPLASM MALIGNANT
     Dosage: 1050 MG, UNK
  19. DECADRON [Concomitant]
     Dosage: 10 MG, UNK
  20. METHOTREXATE [Concomitant]
     Indication: NEOPLASM MALIGNANT
  21. FLUID/ELECTROLYTE REPLACEMENT THERAPY [Concomitant]
     Indication: PROPHYLAXIS
  22. KYTRIL [Concomitant]
     Indication: PROPHYLAXIS
     Dosage: 1 MG, UNK
  23. BENADRYL [Concomitant]
     Indication: PROPHYLAXIS
     Dosage: 50 MG, UNK
  24. TAGAMET [Concomitant]
     Indication: PROPHYLAXIS
     Dosage: 300 MG, UNK
  25. TORECAN [Concomitant]
     Dosage: 10 MG, EVERY 4-6 HOURS PRN
     Dates: start: 19970516
  26. ANZEMET [Concomitant]
  27. CIMETIDINE [Concomitant]
  28. MITOXANTRONE HYDROCHLORIDE [Concomitant]
  29. ETODOLAC [Concomitant]
     Dosage: 400MG  Q8H
  30. MAXALT-MLT [Concomitant]
     Dosage: 10MG UNK
  31. ALPRAZOLAM [Concomitant]
     Dosage: 0.5MG UNK
  32. NASACORT AQ [Concomitant]
  33. MEGESTROL ACETATE [Concomitant]
  34. CELEBREX [Concomitant]
  35. AVELOX [Concomitant]
  36. FLAGYL [Concomitant]
  37. PENICILLIN VK [Concomitant]
  38. DIFLUCAN [Concomitant]
  39. NEURONTIN [Concomitant]
  40. TORADOL [Concomitant]
  41. MS CONTIN [Concomitant]
  42. COMPAZINE [Concomitant]
  43. DURAGESIC-100 [Concomitant]
  44. AMIFOSTINE [Concomitant]
  45. DILANTIN                                /AUS/ [Concomitant]
  46. ATIVAN [Concomitant]
  47. RESTORIL [Concomitant]
  48. AMBIEN [Concomitant]
  49. DARVOCET-N 100 [Concomitant]
  50. LOMOTIL [Concomitant]
  51. ATENOLOL [Concomitant]

REACTIONS (99)
  - ABDOMINAL PAIN [None]
  - ACCIDENT AT WORK [None]
  - AGRANULOCYTOSIS [None]
  - ALPHA HAEMOLYTIC STREPTOCOCCAL INFECTION [None]
  - ANAEMIA [None]
  - AORTIC ARTERIOSCLEROSIS [None]
  - ARTHRALGIA [None]
  - ARTHROSCOPY [None]
  - ASTHENIA [None]
  - ATROPHY [None]
  - BACTERIAL INFECTION [None]
  - BLOOD ALKALINE PHOSPHATASE INCREASED [None]
  - BLOOD GLUCOSE INCREASED [None]
  - BONE DENSITY DECREASED [None]
  - BONE DISORDER [None]
  - BURSITIS [None]
  - CALCIFIC DEPOSITS REMOVAL [None]
  - CARPAL TUNNEL SYNDROME [None]
  - CERVICAL SPINAL STENOSIS [None]
  - COLITIS [None]
  - DEBRIDEMENT [None]
  - DEEP VEIN THROMBOSIS [None]
  - DIARRHOEA [None]
  - DISTURBANCE IN ATTENTION [None]
  - DIVERTICULUM INTESTINAL [None]
  - EAR PAIN [None]
  - ENDODONTIC PROCEDURE [None]
  - EPICONDYLITIS [None]
  - EXOSTOSIS [None]
  - FISTULA [None]
  - FOREIGN BODY [None]
  - GAIT DISTURBANCE [None]
  - GASTROINTESTINAL HAEMORRHAGE [None]
  - GINGIVAL BLEEDING [None]
  - HAEMATOCHEZIA [None]
  - HEART VALVE INCOMPETENCE [None]
  - HEPATIC CYST [None]
  - HYPOAESTHESIA [None]
  - IMPAIRED HEALING [None]
  - INFLAMMATION [None]
  - INJURY [None]
  - INTERVERTEBRAL DISC PROTRUSION [None]
  - JAW OPERATION [None]
  - KNEE OPERATION [None]
  - LIGAMENT RUPTURE [None]
  - LIVER FUNCTION TEST ABNORMAL [None]
  - LUNG NEOPLASM MALIGNANT [None]
  - MASS EXCISION [None]
  - MENISCUS REMOVAL [None]
  - MIGRAINE [None]
  - MOBILITY DECREASED [None]
  - MUSCULOSKELETAL STIFFNESS [None]
  - NAUSEA [None]
  - NECK PAIN [None]
  - NEOPLASM [None]
  - NEUROPATHY PERIPHERAL [None]
  - OEDEMA MUCOSAL [None]
  - OEDEMA PERIPHERAL [None]
  - ONYCHALGIA [None]
  - ONYCHOMYCOSIS [None]
  - ORAL PAIN [None]
  - OSTEOARTHRITIS [None]
  - OSTEOLYSIS [None]
  - OSTEONECROSIS OF JAW [None]
  - OSTEOSCLEROSIS [None]
  - OVARIAN CANCER [None]
  - PAIN IN EXTREMITY [None]
  - PAIN IN JAW [None]
  - PARAESTHESIA [None]
  - PARAESTHESIA ORAL [None]
  - PERIODONTAL DISEASE [None]
  - PLATELET COUNT DECREASED [None]
  - PRIMARY SEQUESTRUM [None]
  - PURULENT DISCHARGE [None]
  - RADICULAR PAIN [None]
  - RADICULOPATHY [None]
  - RHINITIS [None]
  - RIB FRACTURE [None]
  - SALPINGO-OOPHORECTOMY UNILATERAL [None]
  - SLEEP DISORDER [None]
  - SOFT TISSUE DISORDER [None]
  - SPINAL OSTEOARTHRITIS [None]
  - STOMATITIS [None]
  - STOMATOCYTES PRESENT [None]
  - STRESS FRACTURE [None]
  - SURGERY [None]
  - SWELLING [None]
  - SYNOVIAL CYST [None]
  - SYNOVITIS [None]
  - TENDERNESS [None]
  - TENDON SHEATH INCISION [None]
  - TENDONITIS [None]
  - TENOSYNOVITIS [None]
  - TOOTH DISORDER [None]
  - TOOTH EXTRACTION [None]
  - ULCER [None]
  - VOMITING [None]
  - WHITE BLOOD CELL COUNT DECREASED [None]
  - WOUND TREATMENT [None]
